FAERS Safety Report 23081381 (Version 4)
Quarter: 2023Q4

REPORT INFORMATION
  Report Type: Spontaneous
  Country: JP (occurrence: JP)
  Receive Date: 20231018
  Receipt Date: 20231113
  Transmission Date: 20240109
  Serious: Yes (Hospitalization)
  Sender: FDA-Public Use
  Company Number: JP-Eisai-EC-2023-150874

PATIENT
  Age: 77 Year
  Sex: Female

DRUGS (3)
  1. DONEPEZIL [Suspect]
     Active Substance: DONEPEZIL
     Indication: Dementia Alzheimer^s type
     Dosage: FREQUENCY UNKNOWN
     Route: 048
  2. DONEPEZIL [Suspect]
     Active Substance: DONEPEZIL
     Dosage: UNKNOWN DOSE AND FREQUENCY UNKNOWN
     Route: 048
  3. CILOSTAZOL [Concomitant]
     Active Substance: CILOSTAZOL
     Indication: Product used for unknown indication
     Dosage: UNKNOWN DOSE AND FREQUENCY
     Route: 065

REACTIONS (2)
  - Fall [Unknown]
  - Accidental overdose [Unknown]
